FAERS Safety Report 25080624 (Version 1)
Quarter: 2025Q1

REPORT INFORMATION
  Report Type: Spontaneous
  Country: CA (occurrence: CA)
  Receive Date: 20250315
  Receipt Date: 20250315
  Transmission Date: 20250409
  Serious: Yes (Disabling, Other)
  Sender: TEVA
  Company Number: CA-TEVA-VS-3308120

PATIENT
  Age: 32 Year
  Sex: Female

DRUGS (1)
  1. AJOVY [Suspect]
     Active Substance: FREMANEZUMAB-VFRM
     Indication: Migraine
     Dosage: 675 MG QUARTERLY
     Route: 065

REACTIONS (11)
  - Syncope [Unknown]
  - Streptococcal infection [Unknown]
  - Migraine [Unknown]
  - Ear infection [Unknown]
  - Product dose omission issue [Unknown]
  - Disability [Unknown]
  - Impaired work ability [Unknown]
  - Influenza like illness [Unknown]
  - General physical health deterioration [Unknown]
  - Respiratory disorder [Unknown]
  - Insurance issue [Unknown]

NARRATIVE: CASE EVENT DATE: 20241101
